FAERS Safety Report 5530263-0 (Version None)
Quarter: 2007Q4

REPORT INFORMATION
  Report Type: 
  Country: None (occurrence: None)
  Receive Date: 20071127
  Receipt Date: 20071113
  Transmission Date: 20080405
  Serious: Yes (Death)
  Sender: FDA-Public Use
  Company Number: MEDI-0006131

PATIENT
  Age: 7 Month
  Sex: Male
  Weight: 5.3 kg

DRUGS (3)
  1. SYNAGIS [Suspect]
     Indication: SPINAL MUSCULAR ATROPHY CONGENITAL
     Dosage: 75 MG, INTRAMUSCULAR
     Route: 030
     Dates: start: 20071005, end: 20071005
  2. LACTULOSE [Concomitant]
  3. HYOSCINE PATCH (HYOSCINE) [Concomitant]

REACTIONS (1)
  - SUDDEN INFANT DEATH SYNDROME [None]
